FAERS Safety Report 24733950 (Version 4)
Quarter: 2025Q1

REPORT INFORMATION
  Report Type: Spontaneous
  Country: JP (occurrence: JP)
  Receive Date: 20241214
  Receipt Date: 20250128
  Transmission Date: 20250409
  Serious: Yes (Hospitalization, Other)
  Sender: AMGEN
  Company Number: JP-DSJP-DSJ-2024-143791

PATIENT
  Age: 65 Year
  Sex: Male

DRUGS (23)
  1. DENOSUMAB [Suspect]
     Active Substance: DENOSUMAB
     Indication: Metastases to bone
     Route: 058
     Dates: start: 20240829, end: 20240902
  2. PARSABIV [Suspect]
     Active Substance: ETELCALCETIDE HYDROCHLORIDE
     Indication: Hypercalcaemia
     Route: 065
     Dates: end: 20240902
  3. PARSABIV [Suspect]
     Active Substance: ETELCALCETIDE HYDROCHLORIDE
     Indication: Adjusted calcium increased
  4. LANTHANUM CARBONATE [Suspect]
     Active Substance: LANTHANUM CARBONATE
     Indication: Hyperphosphataemia
     Route: 048
  5. ALFACALCIDOL [Concomitant]
     Active Substance: ALFACALCIDOL
     Indication: Hypokalaemia
     Dosage: 1 UG, EVERYDAY
     Route: 048
     Dates: start: 20240829
  6. ALFACALCIDOL [Concomitant]
     Active Substance: ALFACALCIDOL
     Indication: Prophylaxis
     Route: 048
  7. FUROSEMIDE [Concomitant]
     Active Substance: FUROSEMIDE
     Indication: Polyuria
     Dosage: 40 MG, EVERYDAY
     Route: 048
  8. VONOPRAZAN FUMARATE [Concomitant]
     Active Substance: VONOPRAZAN FUMARATE
     Dosage: 10 MG, EVERYDAY
     Route: 048
  9. NIFEDIPINE [Concomitant]
     Active Substance: NIFEDIPINE
     Indication: Hypertension
     Route: 048
  10. EPALRESTAT [Concomitant]
     Active Substance: EPALRESTAT
     Route: 048
  11. P TOL [Concomitant]
     Indication: Hyperphosphataemia
     Dosage: 250 MG, Q8H
     Route: 048
  12. NALFURAFINE HYDROCHLORIDE OD [Concomitant]
     Indication: Pruritus
     Dosage: 2.5 UG, EVERYDAY
     Route: 048
  13. PREGABALIN [Concomitant]
     Active Substance: PREGABALIN
     Route: 048
  14. AMEZINIUM METILSULFATE [Concomitant]
     Active Substance: AMEZINIUM METILSULFATE
     Indication: Hypotension
     Dosage: 10 MG, EVERYDAY
     Route: 048
  15. SHAKUYAKUKANZOTO [Concomitant]
     Active Substance: HERBALS
     Indication: Muscle spasms
     Dosage: 2.5 G, EVERYDAY
     Route: 048
  16. MOUNJARO [Concomitant]
     Active Substance: TIRZEPATIDE
     Indication: Diabetes mellitus
     Dosage: 2.5 MG, QW
     Route: 058
     Dates: start: 20240823
  17. XTANDI [Concomitant]
     Active Substance: ENZALUTAMIDE
     Indication: Prostate cancer
     Dosage: 160 MG, EVERYDAY
     Route: 048
     Dates: start: 20240829
  18. LOXOPROFEN [Concomitant]
     Active Substance: LOXOPROFEN
     Route: 048
  19. ZOLPIDEM TARTRATE [Concomitant]
     Active Substance: ZOLPIDEM TARTRATE
     Indication: Insomnia
     Dosage: 10 MG, EVERYDAY
     Route: 048
  20. EMLA [Concomitant]
     Active Substance: LIDOCAINE\PRILOCAINE
     Indication: Analgesic therapy
     Route: 061
  21. MAXACALCITOL [Concomitant]
     Active Substance: MAXACALCITOL
     Indication: Rapid correction of hyponatraemia
     Route: 065
  22. Fesin [Concomitant]
     Indication: Anaemia
     Route: 065
  23. ETILEFRINE HYDROCHLORIDE [Concomitant]
     Active Substance: ETILEFRINE HYDROCHLORIDE
     Indication: Hypotension
     Route: 065

REACTIONS (3)
  - Hypocalcaemia [Recovered/Resolved]
  - Pneumonia [Recovered/Resolved]
  - Off label use [Unknown]

NARRATIVE: CASE EVENT DATE: 20240902
